FAERS Safety Report 20945168 (Version 1)
Quarter: 2022Q2

REPORT INFORMATION
  Report Type: Spontaneous
  Country: US (occurrence: None)
  Receive Date: 20220609
  Receipt Date: 20220609
  Transmission Date: 20220721
  Serious: Yes (unspecified)
  Sender: FDA-Public Use
  Company Number: None

PATIENT
  Age: 57 Year
  Sex: Male
  Weight: 100.7 kg

DRUGS (5)
  1. HEPARIN [Suspect]
     Active Substance: HEPARIN SODIUM
     Indication: Catheterisation cardiac
     Dosage: FREQUENCY : AS NEEDED;?
     Route: 040
     Dates: start: 20220525, end: 20220525
  2. TICAGRELOR [Concomitant]
     Active Substance: TICAGRELOR
     Dates: start: 20220525, end: 20220525
  3. Synergy DES [Concomitant]
     Dates: start: 20220525, end: 20220525
  4. VERAPAMIL [Concomitant]
     Active Substance: VERAPAMIL HYDROCHLORIDE
     Dates: start: 20220525, end: 20220525
  5. NITROGLYCERIN [Concomitant]
     Active Substance: NITROGLYCERIN
     Dates: start: 20220525, end: 20220525

REACTIONS (6)
  - Ventricular tachycardia [None]
  - Ventricular fibrillation [None]
  - Pulseless electrical activity [None]
  - Vascular stent thrombosis [None]
  - Cardiac procedure complication [None]
  - Post procedural complication circulatory [None]

NARRATIVE: CASE EVENT DATE: 20220525
